FAERS Safety Report 21680712 (Version 2)
Quarter: 2022Q4

REPORT INFORMATION
  Report Type: Spontaneous
  Country: US (occurrence: US)
  Receive Date: 20221205
  Receipt Date: 20221208
  Transmission Date: 20230112
  Serious: Yes (Hospitalization, Other)
  Sender: FDA-Public Use
  Company Number: US-HORIZON THERAPEUTICS-HZN-2022-009272

PATIENT

DRUGS (6)
  1. RAYOS [Suspect]
     Active Substance: PREDNISONE
     Indication: Systemic lupus erythematosus
     Dosage: LOW DOSE
     Route: 065
  2. HYDROXYCHLOROQUINE [Concomitant]
     Active Substance: HYDROXYCHLOROQUINE
     Indication: Systemic lupus erythematosus
  3. NIFEDIPINE [Concomitant]
     Active Substance: NIFEDIPINE
  4. FUROSEMIDE [Concomitant]
     Active Substance: FUROSEMIDE
  5. INSULIN GLARGINE [Concomitant]
     Active Substance: INSULIN GLARGINE
  6. UNSPECIFIED INGREDIENT [Concomitant]
     Active Substance: UNSPECIFIED INGREDIENT
     Indication: Systemic lupus erythematosus

REACTIONS (1)
  - Tubulointerstitial nephritis [Recovering/Resolving]
